FAERS Safety Report 8488727-6 (Version None)
Quarter: 2012Q3

REPORT INFORMATION
  Report Type: 
  Country: None (occurrence: None)
  Receive Date: 20120705
  Receipt Date: 20120627
  Transmission Date: 20120928
  Serious: Yes (Hospitalization)
  Sender: FDA-Public Use
  Company Number: US-UCBSA-060725

PATIENT
  Age: 54 Year
  Sex: Female
  Weight: 132.5 kg

DRUGS (9)
  1. METFORMIN HCL [Concomitant]
     Indication: TYPE 2 DIABETES MELLITUS
     Dosage: AT NIGHT
     Route: 048
     Dates: start: 20120201
  2. LEXAPRO [Concomitant]
     Indication: MIGRAINE
  3. PROTONIX EC [Concomitant]
     Indication: DYSPEPSIA
     Route: 048
  4. ICAR/C PLUS [Concomitant]
     Indication: MINERAL SUPPLEMENTATION
     Route: 048
     Dates: start: 20120101
  5. CYANOCOBALAMIN [Concomitant]
     Indication: VITAMIN SUPPLEMENTATION
     Dosage: DAILY DOSE: 3/35/2 MG
     Route: 048
  6. NEURONTIN [Concomitant]
     Indication: MIGRAINE
     Dosage: 300 MG PILLS ONE IN AM AND 2 PILLS AT NIGHT
     Route: 048
  7. CIMZIA [Suspect]
     Indication: RHEUMATOID ARTHRITIS
     Route: 058
     Dates: end: 20120524
  8. METHOTREXATE [Concomitant]
     Indication: RHEUMATOID ARTHRITIS
     Route: 030
  9. NAPROLEN CR [Concomitant]
     Indication: ARTHRITIS
     Dosage: 750 MG (2 PILLS ONCE A DAY)
     Route: 048

REACTIONS (2)
  - NEPHROLITHIASIS [None]
  - KIDNEY INFECTION [None]
